FAERS Safety Report 16876952 (Version 7)
Quarter: 2020Q1

REPORT INFORMATION
  Report Type: Spontaneous
  Country: HU (occurrence: HU)
  Receive Date: 20191002
  Receipt Date: 20200115
  Transmission Date: 20200409
  Serious: Yes (Other)
  Sender: FDA-Public Use
  Company Number: HU-PFIZER INC-2019416410

PATIENT
  Age: 38 Year
  Sex: Female

DRUGS (9)
  1. PANTOPRAZOLE [Suspect]
     Active Substance: PANTOPRAZOLE
     Dosage: 40 MILLIGRAM
     Route: 065
  2. MITOXANTRONE [Concomitant]
     Active Substance: MITOXANTRONE HYDROCHLORIDE
     Dosage: UNK
     Route: 065
  3. CLADRIBINE. [Concomitant]
     Active Substance: CLADRIBINE
     Dosage: UNK
     Route: 065
  4. ACYCLOVIR [ACICLOVIR] [Concomitant]
     Active Substance: ACYCLOVIR
     Dosage: 400 MG, 2X/DAY BID (800MG DAILY)
  5. FILGRASTIM [Suspect]
     Active Substance: FILGRASTIM
     Dosage: UNK
     Route: 065
  6. RYDAPT [Suspect]
     Active Substance: MIDOSTAURIN
     Indication: ACUTE MYELOID LEUKAEMIA
     Dosage: 50 MG, 2X/DAY (BID)
     Route: 065
  7. RYDAPT [Suspect]
     Active Substance: MIDOSTAURIN
     Dosage: 50 MG, 2X/DAY (BID) (MAINTENANCE THERAPY)
     Route: 065
     Dates: start: 201904
  8. CYTARABINE. [Suspect]
     Active Substance: CYTARABINE
     Indication: ACUTE MYELOID LEUKAEMIA
     Dosage: UNK
  9. ALLOPURINOL. [Suspect]
     Active Substance: ALLOPURINOL
     Dosage: 300 MILLIGRAM

REACTIONS (8)
  - Abdominal wall wound [Unknown]
  - Megacolon [Unknown]
  - Pancytopenia [Unknown]
  - Wound secretion [Unknown]
  - Sepsis [Unknown]
  - Neoplasm progression [Unknown]
  - Retinal haemorrhage [Unknown]
  - Myeloblast percentage decreased [Unknown]

NARRATIVE: CASE EVENT DATE: 201906
